FAERS Safety Report 4311398-7 (Version None)
Quarter: 2004Q1

REPORT INFORMATION
  Report Type: 
  Country: None (occurrence: None)
  Receive Date: 20040302
  Receipt Date: 20031114
  Transmission Date: 20041129
  Serious: No
  Sender: FDA-Public Use
  Company Number: 200328433BWH

PATIENT
  Age: 75 Year
  Sex: Male
  Weight: 81.6475 kg

DRUGS (3)
  1. LEVITRA [Suspect]
     Indication: ERECTILE DYSFUNCTION
     Dosage: 10 MG, PRN, ORAL
     Route: 048
     Dates: start: 20031113
  2. LIPITOR [Concomitant]
  3. PRILOSEC [Concomitant]

REACTIONS (4)
  - ERYTHEMA [None]
  - FLUSHING [None]
  - RASH [None]
  - RASH PRURITIC [None]
